FAERS Safety Report 16464959 (Version 1)
Quarter: 2019Q2

REPORT INFORMATION
  Report Type: Spontaneous
  Country: CO (occurrence: CO)
  Receive Date: 20190621
  Receipt Date: 20190621
  Transmission Date: 20190711
  Serious: Yes (Other)
  Sender: FDA-Public Use
  Company Number: CO-ASCEND THERAPEUTICS-2069468

PATIENT
  Age: 36 Year
  Sex: Female

DRUGS (5)
  1. UTROGESTAN [Suspect]
     Active Substance: PROGESTERONE
     Route: 048
  2. GESPROGEN (PROGESTERONE)?HORMONE THERAPY [Suspect]
     Active Substance: PROGESTERONE
     Route: 042
  3. PROGYNOVA (ESTRADIOL VALERATE)?OVULATION INDUCTION [Suspect]
     Active Substance: ESTRADIOL VALERATE
     Route: 048
  4. ESTROGEL [Suspect]
     Active Substance: ESTRADIOL
     Indication: HORMONE THERAPY
  5. CHORIONIC GONADOTROPIN [Suspect]
     Active Substance: CHORIOGONADOTROPIN ALFA

REACTIONS (4)
  - Haemorrhagic ovarian cyst [Unknown]
  - Maternal exposure before pregnancy [None]
  - Ovarian hyperstimulation syndrome [Unknown]
  - Acute kidney injury [Recovered/Resolved]
